FAERS Safety Report 9875234 (Version 1)
Quarter: 2014Q1

REPORT INFORMATION
  Report Type: Spontaneous
  Country: US (occurrence: None)
  Receive Date: 20140205
  Receipt Date: 20140205
  Transmission Date: 20141002
  Serious: No
  Sender: FDA-Public Use
  Company Number: None

PATIENT
  Age: 30 Year
  Sex: Female
  Weight: 58.06 kg

DRUGS (1)
  1. STRATTERA [Suspect]

REACTIONS (12)
  - Dizziness [None]
  - Gastric disorder [None]
  - Dizziness [None]
  - Nausea [None]
  - Influenza like illness [None]
  - Hot flush [None]
  - Insomnia [None]
  - Dyspepsia [None]
  - Malaise [None]
  - Dyspepsia [None]
  - Drug ineffective [None]
  - Libido decreased [None]
